FAERS Safety Report 17124094 (Version 2)
Quarter: 2020Q2

REPORT INFORMATION
  Report Type: Spontaneous
  Country: JP (occurrence: JP)
  Receive Date: 20191206
  Receipt Date: 20200609
  Transmission Date: 20200713
  Serious: Yes (Other)
  Sender: FDA-Public Use
  Company Number: JP-GUERBET-JP-20190230

PATIENT

DRUGS (2)
  1. LIPIODOL [Suspect]
     Active Substance: ETHIODIZED OIL
     Indication: TRANSCATHETER ARTERIAL CHEMOEMBOLISATION
     Route: 013
  2. GELATIN SPONGE PARTICLES [Suspect]
     Active Substance: DEVICE\GELATIN
     Indication: TRANSCATHETER ARTERIAL CHEMOEMBOLISATION
     Route: 013

REACTIONS (1)
  - Biliary tract disorder [Recovered/Resolved]
